FAERS Safety Report 6248815-1 (Version None)
Quarter: 2009Q2

REPORT INFORMATION
  Report Type: 
  Country: None (occurrence: None)
  Receive Date: 20090629
  Receipt Date: 20090618
  Transmission Date: 20091009
  Serious: Yes (Other)
  Sender: FDA-Public Use
  Company Number: AU-ASTRAZENECA-2009SE01846

PATIENT
  Age: 74 Year
  Sex: Female

DRUGS (2)
  1. NEXIUM [Suspect]
     Indication: GASTROOESOPHAGEAL REFLUX DISEASE
     Route: 048
     Dates: start: 20090514, end: 20090515
  2. NEXIUM [Suspect]
     Route: 048
     Dates: start: 20090515, end: 20090515

REACTIONS (7)
  - ABDOMINAL DISCOMFORT [None]
  - ALOPECIA [None]
  - ERYTHEMA [None]
  - HEADACHE [None]
  - JOINT SWELLING [None]
  - MYALGIA [None]
  - PAIN IN EXTREMITY [None]
